FAERS Safety Report 5333059-8 (Version None)
Quarter: 2007Q1

REPORT INFORMATION
  Report Type: 
  Country: None (occurrence: None)
  Receive Date: 20070306
  Receipt Date: 20060314
  Transmission Date: 20070707
  Serious: Yes (Other)
  Sender: FDA-Public Use
  Company Number: A03200601421

PATIENT
  Sex: Male

DRUGS (2)
  1. PLAVIX [Suspect]
     Indication: MYOCARDIAL INFARCTION
     Dosage: ORAL
     Route: 048
     Dates: start: 20031201
  2. PLAVIX [Suspect]
     Indication: STENT PLACEMENT
     Dosage: ORAL
     Route: 048
     Dates: start: 20031201

REACTIONS (1)
  - MYOCARDIAL INFARCTION [None]
